FAERS Safety Report 4945262-7 (Version None)
Quarter: 2006Q1

REPORT INFORMATION
  Report Type: 
  Country: None (occurrence: None)
  Receive Date: 20060316
  Receipt Date: 20060306
  Transmission Date: 20060701
  Serious: Yes (Other)
  Sender: FDA-Public Use
  Company Number: AU-BRISTOL-MYERS SQUIBB COMPANY-13303854

PATIENT
  Sex: Male

DRUGS (1)
  1. IRBESARTAN AND HYDROCHLOROTHIAZIDE [Suspect]
     Dosage: DURATION OF THERAPY:  A FEW YEARS
     Route: 048

REACTIONS (5)
  - AMNESIA [None]
  - FATIGUE [None]
  - LETHARGY [None]
  - PAIN [None]
  - VISUAL ACUITY REDUCED [None]
